FAERS Safety Report 6775423-6 (Version None)
Quarter: 2010Q2

REPORT INFORMATION
  Report Type: 
  Country: None (occurrence: None)
  Receive Date: 20100520
  Receipt Date: 20090310
  Transmission Date: 20101027
  Serious: Yes (Other)
  Sender: FDA-Public Use
  Company Number: 2006102036

PATIENT
  Age: 53 Year
  Sex: Female
  Weight: 77 kg

DRUGS (7)
  1. PROVERA [Suspect]
     Indication: HORMONE REPLACEMENT THERAPY
     Dosage: 10 MG ; 0.25 MG
  2. PREMARIN [Suspect]
     Indication: HOT FLUSH
     Dosage: 0.25 MG
  3. PREMARIN [Suspect]
     Indication: IRRITABILITY
     Dosage: 0.25 MG
  4. PREMPRO [Suspect]
     Indication: HOT FLUSH
     Dosage: 0.625 MG ; 0.25 MG
  5. PREMPRO [Suspect]
     Indication: IRRITABILITY
     Dosage: 0.625 MG ; 0.25 MG
  6. FELDENE [Concomitant]
  7. LEVOXYL [Concomitant]

REACTIONS (1)
  - BREAST CANCER FEMALE [None]
